FAERS Safety Report 8824229 (Version 1)
Quarter: 2012Q4

REPORT INFORMATION
  Report Type: 
  Country: US (occurrence: US)
  Receive Date: 20121004
  Receipt Date: 20121004
  Transmission Date: 20130627
  Serious: No
  Sender: FDA-Public Use
  Company Number: US-BIOGENIDEC-2012BI040916

PATIENT
  Sex: Male

DRUGS (5)
  1. AVONEX [Suspect]
     Indication: MULTIPLE SCLEROSIS
     Route: 030
  2. AVONEX [Suspect]
     Indication: MULTIPLE SCLEROSIS
     Route: 030
     Dates: start: 20110201
  3. AVONEX [Suspect]
     Indication: MULTIPLE SCLEROSIS
     Route: 030
     Dates: start: 20110607
  4. PREDNISONE [Concomitant]
     Indication: PREMEDICATION
  5. ALIEVE [Concomitant]
     Indication: PREMEDICATION

REACTIONS (3)
  - Lethargy [Unknown]
  - Influenza like illness [Unknown]
  - Feeling hot [Unknown]
